FAERS Safety Report 22167824 (Version 1)
Quarter: 2023Q2

REPORT INFORMATION
  Report Type: Spontaneous
  Country: FR (occurrence: FR)
  Receive Date: 20230403
  Receipt Date: 20230403
  Transmission Date: 20230721
  Serious: Yes (Hospitalization)
  Sender: FDA-Public Use
  Company Number: None

PATIENT
  Age: 1 Year
  Sex: Female
  Weight: 10.84 kg

DRUGS (11)
  1. MONTELUKAST SODIUM [Suspect]
     Active Substance: MONTELUKAST SODIUM
     Indication: Childhood asthma
     Route: 065
     Dates: start: 20230303
  2. MONTELUKAST SODIUM [Suspect]
     Active Substance: MONTELUKAST SODIUM
     Route: 065
     Dates: start: 20230106, end: 20230228
  3. MEDIUM-CHAIN TRIGLYCERIDES\SOYBEAN OIL [Suspect]
     Active Substance: MEDIUM-CHAIN TRIGLYCERIDES\SOYBEAN OIL
     Indication: Hyperglycinaemia
     Dates: start: 20230226, end: 20230227
  4. CARBAGLU [Suspect]
     Active Substance: CARGLUMIC ACID
     Indication: Hyperammonaemia
     Dates: start: 20230227, end: 20230227
  5. CARBAGLU [Suspect]
     Active Substance: CARGLUMIC ACID
     Dates: start: 20230228, end: 20230228
  6. ALBUTEROL [Concomitant]
     Active Substance: ALBUTEROL
     Indication: Childhood asthma
  7. IPRATROPIUM BROMIDE [Concomitant]
     Active Substance: IPRATROPIUM BROMIDE\IPRATROPIUM BROMIDE ANHYDROUS
     Indication: Childhood asthma
  8. CHOLECALCIFEROL [Concomitant]
     Active Substance: CHOLECALCIFEROL
     Indication: Vitamin supplementation
  9. LEVOTHYROXINE SODIUM [Concomitant]
     Active Substance: LEVOTHYROXINE SODIUM
     Indication: Hypothyroidism
  10. BUDESONIDE [Concomitant]
     Active Substance: BUDESONIDE
     Indication: Childhood asthma
  11. LEVOCARNITINE [Concomitant]
     Active Substance: LEVOCARNITINE
     Indication: Hyperglycinaemia

REACTIONS (1)
  - Hepatic cytolysis [Recovering/Resolving]

NARRATIVE: CASE EVENT DATE: 20230228
